FAERS Safety Report 8426775-2 (Version None)
Quarter: 2012Q2

REPORT INFORMATION
  Report Type: 
  Country: None (occurrence: None)
  Receive Date: 20120611
  Receipt Date: 20120606
  Transmission Date: 20120825
  Serious: Yes (Hospitalization, Other)
  Sender: FDA-Public Use
  Company Number: PHHO2011CO03884

PATIENT
  Sex: Female
  Weight: 62.2 kg

DRUGS (15)
  1. BLINDED ALISKIREN [Suspect]
     Dosage: CODE NOT BROKEN
     Route: 048
     Dates: end: 20120215
  2. ENALAPRIL MALEATE [Suspect]
     Dosage: CODE NOT BROKEN
     Route: 048
     Dates: end: 20120215
  3. METOPROLOL TARTRATE [Concomitant]
     Indication: CARDIAC FAILURE
     Dosage: 100 MG, BID
     Dates: start: 20080610
  4. DIGOXIN [Concomitant]
     Indication: CARDIAC FAILURE
     Dosage: 0.1 MG, QD
     Dates: start: 20101215
  5. BLINDED ALISKIREN [Suspect]
     Indication: CARDIAC FAILURE
     Dosage: CODE NOT BROKEN
     Route: 048
     Dates: start: 20101124, end: 20110317
  6. BLINDED NO TREATMENT RECEIVED [Suspect]
     Dosage: CODE NOT BROKEN
     Route: 048
     Dates: end: 20120215
  7. ENALAPRIL MALEATE [Suspect]
     Indication: CARDIAC FAILURE
     Dosage: CODE NOT BROKEN
     Route: 048
     Dates: start: 20101124, end: 20110317
  8. ASPIRIN [Concomitant]
     Indication: CORONARY ARTERY DISEASE
     Dosage: 100 MG, QD
     Dates: start: 20100610
  9. ENALAPRIL MALEATE [Concomitant]
     Indication: CARDIAC FAILURE
     Dosage: 10 MG, BID
     Dates: start: 20080601
  10. BLINDED NO TREATMENT RECEIVED [Suspect]
     Indication: CARDIAC FAILURE
     Dosage: CODE NOT BROKEN
     Route: 048
     Dates: start: 20101124, end: 20110317
  11. ALISKIREN [Suspect]
     Indication: CARDIAC FAILURE
     Dosage: UNK
  12. LOVASTATIN [Concomitant]
     Indication: DYSLIPIDAEMIA
     Dosage: 40 MG, QD
     Dates: start: 20080610
  13. ESPIRONOLACTONA [Concomitant]
     Indication: CARDIAC FAILURE
     Dosage: 25 MG, UNK
     Dates: start: 20081110
  14. ENALAPRIL MALEATE [Suspect]
     Indication: CARDIAC FAILURE
     Dosage: UNK
  15. FURSEMIDA [Concomitant]
     Indication: CARDIAC FAILURE
     Dosage: 40 MG, BID
     Dates: start: 20080610

REACTIONS (2)
  - THROMBOCYTOPENIA [None]
  - CONCOMITANT DISEASE PROGRESSION [None]
